FAERS Safety Report 20235182 (Version 2)
Quarter: 2022Q1

REPORT INFORMATION
  Report Type: Spontaneous
  Country: US (occurrence: US)
  Receive Date: 20211227
  Receipt Date: 20220201
  Transmission Date: 20220423
  Serious: Yes (Other)
  Sender: FDA-Public Use
  Company Number: US-JNJFOC-20211245839

PATIENT
  Sex: Male
  Weight: 95.340 kg

DRUGS (1)
  1. XARELTO [Suspect]
     Active Substance: RIVAROXABAN
     Indication: Product used for unknown indication
     Dosage: 30 TABLETS
     Route: 048

REACTIONS (5)
  - Thrombosis [Unknown]
  - Haemorrhagic diathesis [Unknown]
  - Vascular catheterisation [Unknown]
  - Limb injury [Unknown]
  - Muscle tightness [Unknown]
